FAERS Safety Report 6782153-3 (Version None)
Quarter: 2010Q2

REPORT INFORMATION
  Report Type: 
  Country: None (occurrence: None)
  Receive Date: 20100621
  Receipt Date: 20100608
  Transmission Date: 20101027
  Serious: Yes (Other)
  Sender: FDA-Public Use
  Company Number: PHHY2010US34374

PATIENT
  Sex: Female

DRUGS (4)
  1. GLEEVEC [Suspect]
     Indication: CHRONIC MYELOID LEUKAEMIA
     Dosage: 600 MG, QD
     Route: 048
     Dates: start: 20090301
  2. FIORICET [Concomitant]
     Indication: HEADACHE
  3. TALWIN NX [Concomitant]
  4. VITAMINS [Concomitant]

REACTIONS (11)
  - ABDOMINAL PAIN [None]
  - BACK PAIN [None]
  - DIARRHOEA [None]
  - DRUG DOSE OMISSION [None]
  - DRUG INEFFECTIVE [None]
  - IRRITABLE BOWEL SYNDROME [None]
  - NAUSEA [None]
  - NEUTROPHIL TOXIC GRANULATION PRESENT [None]
  - PLATELET COUNT INCREASED [None]
  - STRESS [None]
  - WHITE BLOOD CELL COUNT INCREASED [None]
